FAERS Safety Report 16749077 (Version 1)
Quarter: 2019Q3

REPORT INFORMATION
  Report Type: Spontaneous
  Country: US (occurrence: US)
  Receive Date: 20190828
  Receipt Date: 20190828
  Transmission Date: 20191005
  Serious: Yes (Other)
  Sender: FDA-Public Use
  Company Number: US-SANOFI-AVENTIS-2012SA064693

PATIENT
  Age: 84 Year
  Sex: Female

DRUGS (2)
  1. ALLEGRA ALLERGY [Suspect]
     Active Substance: FEXOFENADINE HYDROCHLORIDE
     Dosage: 180 MG, QD
  2. ALLEGRA ALLERGY [Suspect]
     Active Substance: FEXOFENADINE HYDROCHLORIDE
     Indication: SEASONAL ALLERGY
     Dosage: 180 MG,QD
     Route: 048

REACTIONS (10)
  - Abdominal discomfort [Not Recovered/Not Resolved]
  - Skin infection [Unknown]
  - Sinusitis [Unknown]
  - Infection [Unknown]
  - Dry mouth [Not Recovered/Not Resolved]
  - Coeliac disease [Unknown]
  - Panic reaction [Unknown]
  - Glaucoma [Unknown]
  - Malaise [Unknown]
  - Hypersensitivity [Unknown]
